FAERS Safety Report 7570853-7 (Version None)
Quarter: 2011Q2

REPORT INFORMATION
  Report Type: 
  Country: None (occurrence: None)
  Receive Date: 20110620
  Receipt Date: 20110608
  Transmission Date: 20111010
  Serious: Yes (Life-Threatening, Hospitalization)
  Sender: FDA-Public Use
  Company Number: 919659

PATIENT
  Age: 54 Year
  Sex: Female

DRUGS (2)
  1. DOCETAXEL [Suspect]
     Indication: PRODUCT USED FOR UNKNOWN INDICATION
     Dosage: INFUSION
     Dates: start: 20110510, end: 20110510
  2. DEXTROSE [Suspect]
     Indication: PRODUCT USED FOR UNKNOWN INDICATION
     Dosage: INFUSION
     Dates: start: 20110510, end: 20110510

REACTIONS (7)
  - LOSS OF CONSCIOUSNESS [None]
  - FALL [None]
  - SKIN DISCOLOURATION [None]
  - DYSPNOEA [None]
  - RESPIRATORY ARREST [None]
  - PULSE ABSENT [None]
  - CRYING [None]
